FAERS Safety Report 23079400 (Version 1)
Quarter: 2023Q4

REPORT INFORMATION
  Report Type: Spontaneous
  Country: CN (occurrence: CN)
  Receive Date: 20231018
  Receipt Date: 20231018
  Transmission Date: 20240110
  Serious: Yes (Hospitalization, Other)
  Sender: FDA-Public Use
  Company Number: CN-009507513-2310CHN006559

PATIENT
  Age: 59 Year
  Sex: Female
  Weight: 60 kg

DRUGS (6)
  1. KEYTRUDA [Suspect]
     Active Substance: PEMBROLIZUMAB
     Indication: EGFR gene mutation
     Dosage: 200 MG ONCE
     Route: 041
     Dates: start: 20230904, end: 20230904
  2. KEYTRUDA [Suspect]
     Active Substance: PEMBROLIZUMAB
     Indication: Lung neoplasm malignant
  3. PEMETREXED DISODIUM [Suspect]
     Active Substance: PEMETREXED DISODIUM
     Indication: EGFR gene mutation
     Dosage: 200 MILLIGRAM, ONCE
     Route: 041
     Dates: start: 20230907, end: 20230907
  4. PEMETREXED DISODIUM [Suspect]
     Active Substance: PEMETREXED DISODIUM
     Indication: Lung neoplasm malignant
     Dosage: 500 MILLIGRAM, ONCE
     Route: 041
     Dates: start: 20230907, end: 20230907
  5. CISPLATIN [Suspect]
     Active Substance: CISPLATIN
     Indication: EGFR gene mutation
     Dosage: 30 MG, 1 TIME/DAY (QD)
     Route: 041
     Dates: start: 20230907, end: 20230909
  6. CISPLATIN [Suspect]
     Active Substance: CISPLATIN
     Indication: Lung neoplasm malignant

REACTIONS (3)
  - Hospitalisation [Recovered/Resolved]
  - Myelosuppression [Unknown]
  - Product use in unapproved indication [Unknown]

NARRATIVE: CASE EVENT DATE: 20230101
